FAERS Safety Report 7532564-3 (Version None)
Quarter: 2011Q2

REPORT INFORMATION
  Report Type: 
  Country: None (occurrence: None)
  Receive Date: 20110608
  Receipt Date: 20110527
  Transmission Date: 20111010
  Serious: Yes (Hospitalization, Other)
  Sender: FDA-Public Use
  Company Number: PHHY2008GB18610

PATIENT
  Sex: Male

DRUGS (12)
  1. CLOZAPINE [Suspect]
     Dosage: UNK MG, UNK
     Route: 048
  2. AMISULPRIDE [Suspect]
     Dosage: UNK DF, UNK
     Dates: start: 20090101
  3. DIAZEPAM [Concomitant]
     Dosage: UNK DF, PRN
  4. OLANZAPINE [Concomitant]
     Dosage: 25MG UNK
     Dates: start: 20090101
  5. MIRTAZAPINE [Concomitant]
     Indication: DEPRESSED MOOD
     Dosage: UNK DF, UNK
     Dates: end: 20080801
  6. PROCYCLIDINE HYDROCHLORIDE 2MG TAB [Concomitant]
     Dosage: 5 MG, TID
  7. OLANZAPINE [Concomitant]
     Dosage: UNK DF, UNK
     Dates: start: 20090401
  8. CLOZAPINE [Suspect]
     Indication: SCHIZOPHRENIA
     Dosage: UNK MG, UNK
     Route: 048
     Dates: start: 20080128, end: 20080812
  9. ARIPIPRAZOLE [Concomitant]
     Indication: PSYCHOTIC DISORDER
     Dosage: 15 MG/DAY
     Route: 048
     Dates: start: 20080801
  10. OLANZAPINE [Concomitant]
     Dosage: 30MG
     Dates: start: 20091001
  11. OLANZAPINE [Concomitant]
     Dosage: 25MG
  12. CLOZAPINE [Suspect]
     Dosage: UNK MG, UNK
     Route: 048
     Dates: start: 20090223, end: 20090402

REACTIONS (15)
  - BLOOD PROLACTIN INCREASED [None]
  - DISINHIBITION [None]
  - PHYSICAL ASSAULT [None]
  - WHITE BLOOD CELL COUNT DECREASED [None]
  - NEUTROPENIA [None]
  - DIARRHOEA [None]
  - ELECTROCARDIOGRAM ABNORMAL [None]
  - EXTRAPYRAMIDAL DISORDER [None]
  - HYPERHIDROSIS [None]
  - VOMITING [None]
  - HYPOMANIA [None]
  - AGITATION [None]
  - WHITE BLOOD CELL COUNT INCREASED [None]
  - CHOLINERGIC SYNDROME [None]
  - ANTISOCIAL BEHAVIOUR [None]
